FAERS Safety Report 7557996-9 (Version None)
Quarter: 2011Q2

REPORT INFORMATION
  Report Type: 
  Country: None (occurrence: None)
  Receive Date: 20110620
  Receipt Date: 20110610
  Transmission Date: 20111010
  Serious: Yes (Other)
  Sender: FDA-Public Use
  Company Number: US-ASTRAZENECA-2011SE24047

PATIENT
  Age: 61 Year
  Sex: Male

DRUGS (3)
  1. NEXIUM [Suspect]
     Route: 048
  2. NEXIUM [Suspect]
     Route: 048
     Dates: start: 20010101, end: 20110401
  3. ZANTAC [Concomitant]

REACTIONS (10)
  - CARDIAC FAILURE CHRONIC [None]
  - GASTROOESOPHAGEAL REFLUX DISEASE [None]
  - DYSPHAGIA [None]
  - DIARRHOEA [None]
  - WEIGHT DECREASED [None]
  - VOMITING [None]
  - REGURGITATION [None]
  - DYSPHONIA [None]
  - DRUG DOSE OMISSION [None]
  - HAEMOPTYSIS [None]
